FAERS Safety Report 13463697 (Version 2)
Quarter: 2017Q2

REPORT INFORMATION
  Report Type: Spontaneous
  Country: SI (occurrence: SI)
  Receive Date: 20170420
  Receipt Date: 20170515
  Transmission Date: 20170830
  Serious: Yes (Hospitalization, Other)
  Sender: FDA-Public Use
  Company Number: SI-SAOL THERAPEUTICS-2017SAO00702

PATIENT
  Age: 59 Year
  Sex: Male

DRUGS (3)
  1. BACLOFEN (SUN PHARMA) [Suspect]
     Active Substance: BACLOFEN
     Route: 037
  2. LIORESAL [Suspect]
     Active Substance: BACLOFEN
     Dosage: 1200 ?G, \DAY
     Route: 037
  3. BACLOFEN (MEDUNA) [Suspect]
     Active Substance: BACLOFEN
     Dosage: 1200 ?G, \DAY
     Route: 037

REACTIONS (4)
  - Clonus [None]
  - Device alarm issue [Unknown]
  - Hyperthermia [Unknown]
  - Drug withdrawal syndrome [Unknown]

NARRATIVE: CASE EVENT DATE: 20170408
